FAERS Safety Report 22231213 (Version 2)
Quarter: 2023Q2

REPORT INFORMATION
  Report Type: Spontaneous
  Country: RO (occurrence: RO)
  Receive Date: 20230420
  Receipt Date: 20230629
  Transmission Date: 20230721
  Serious: Yes (Other)
  Sender: FDA-Public Use
  Company Number: RO-PFIZER INC-PV202300063941

PATIENT
  Age: 42 Year
  Sex: Female

DRUGS (6)
  1. LEFLUNOMIDE [Interacting]
     Active Substance: LEFLUNOMIDE
     Indication: Rheumatoid arthritis
     Dosage: 20 MILLIGRAM, ONCE A DAY
     Route: 065
  2. ETANERCEPT [Interacting]
     Active Substance: ETANERCEPT
     Indication: Rheumatoid arthritis
     Dosage: UNK
     Route: 065
  3. ISONIAZID [Interacting]
     Active Substance: ISONIAZID
     Indication: Rheumatoid arthritis
     Dosage: 300 MILLIGRAM, ONCE A DAY
     Route: 065
  4. ISONIAZID [Interacting]
     Active Substance: ISONIAZID
     Indication: Tuberculosis
  5. METHOTREXATE [Concomitant]
     Active Substance: METHOTREXATE
     Indication: Rheumatoid arthritis
     Dosage: 10 MILLIGRAM, EVERY WEEK
     Route: 065
  6. METHOTREXATE [Concomitant]
     Active Substance: METHOTREXATE
     Dosage: 20 MILLIGRAM, EVERY WEEK
     Route: 065

REACTIONS (2)
  - Lupus-like syndrome [Recovered/Resolved]
  - Drug interaction [Unknown]
